FAERS Safety Report 6769555-6 (Version None)
Quarter: 2010Q2

REPORT INFORMATION
  Report Type: 
  Country: None (occurrence: None)
  Receive Date: 20100615
  Receipt Date: 20100603
  Transmission Date: 20101027
  Serious: Yes (Hospitalization)
  Sender: FDA-Public Use
  Company Number: PHHY2009KR29125

PATIENT
  Sex: Female

DRUGS (1)
  1. SANDOSTATIN LAR [Suspect]
     Indication: ACROMEGALY
     Dosage: 10 MG EVERY 4 WEEKS
     Route: 030
     Dates: start: 20090226

REACTIONS (3)
  - ARTHROPATHY [None]
  - CEREBRAL INFARCTION [None]
  - JOINT SURGERY [None]
